FAERS Safety Report 8993619 (Version 1)
Quarter: 2013Q1

REPORT INFORMATION
  Report Type: Spontaneous
  Country: US (occurrence: US)
  Receive Date: 20130102
  Receipt Date: 20130102
  Transmission Date: 20140127
  Serious: Yes (Hospitalization, Other)
  Sender: FDA-Public Use
  Company Number: US-ASTRAZENECA-2012SE81877

PATIENT
  Age: 42 Year
  Sex: Female

DRUGS (6)
  1. SYMBICORT PMDI [Suspect]
     Indication: ASTHMA
     Dosage: UNKNOWN STRENGTH, 2 INHALATIONS BID
     Route: 055
  2. SYMBICORT PMDI [Suspect]
     Indication: ASTHMA
     Dosage: UNKNOWN STRENGTH, 2 INHALATIONS BID
     Route: 055
  3. ALENDRONATE [Concomitant]
     Indication: OSTEOPOROSIS
  4. THEOPHYLLINE [Concomitant]
     Indication: ASTHMA
     Route: 048
     Dates: end: 20091010
  5. THEOPHYLLINE [Concomitant]
     Indication: ASTHMA
     Route: 048
     Dates: start: 20121212
  6. PULMICORT [Concomitant]
     Route: 055

REACTIONS (5)
  - Pneumonia [Unknown]
  - Influenza [Unknown]
  - Immunodeficiency [Unknown]
  - Anxiety disorder [Unknown]
  - Circumstance or information capable of leading to medication error [Unknown]
